FAERS Safety Report 17575800 (Version 1)
Quarter: 2020Q1

REPORT INFORMATION
  Report Type: Spontaneous
  Country: DE (occurrence: DE)
  Receive Date: 20200324
  Receipt Date: 20200324
  Transmission Date: 20200409
  Serious: Yes (Other)
  Sender: FDA-Public Use
  Company Number: DE-PFIZER INC-2020120462

PATIENT
  Sex: Female

DRUGS (2)
  1. EXEMESTANE. [Suspect]
     Active Substance: EXEMESTANE
     Indication: BREAST CANCER FEMALE
     Dosage: UNK
     Dates: start: 201903
  2. EVEROLIMUS. [Suspect]
     Active Substance: EVEROLIMUS
     Indication: BREAST CANCER FEMALE
     Dosage: UNK
     Dates: start: 201903

REACTIONS (4)
  - Pleural mass [Unknown]
  - Pneumonitis [Not Recovered/Not Resolved]
  - Liver disorder [Unknown]
  - Lung infiltration [Unknown]

NARRATIVE: CASE EVENT DATE: 201906
